FAERS Safety Report 11884743 (Version 2)
Quarter: 2016Q1

REPORT INFORMATION
  Report Type: Spontaneous
  Country: US (occurrence: US)
  Receive Date: 20160104
  Receipt Date: 20160204
  Transmission Date: 20160526
  Serious: Yes (Other)
  Sender: FDA-Public Use
  Company Number: US-BEH-2015057307

PATIENT
  Age: 12 Year
  Sex: Male
  Weight: 38 kg

DRUGS (17)
  1. HIZENTRA [Suspect]
     Active Substance: HUMAN IMMUNOGLOBULIN G
     Route: 058
  2. PULMOZYME [Concomitant]
     Active Substance: DORNASE ALFA
  3. HIZENTRA [Suspect]
     Active Substance: HUMAN IMMUNOGLOBULIN G
     Route: 058
  4. BETAMETHASONE. [Concomitant]
     Active Substance: BETAMETHASONE
  5. PULMICORT TURBUHALER [Concomitant]
     Active Substance: BUDESONIDE
  6. PREVACID [Concomitant]
     Active Substance: LANSOPRAZOLE
  7. CHILDRENS MOTRIN [Concomitant]
     Active Substance: IBUPROFEN
  8. ACETYLCYSTEINE. [Concomitant]
     Active Substance: ACETYLCYSTEINE
  9. DIPHENHYDRAMINE. [Concomitant]
     Active Substance: DIPHENHYDRAMINE
  10. LIDOCAINE/PRILOCAINE [Concomitant]
  11. EPIPEN [Concomitant]
     Active Substance: EPINEPHRINE
  12. CREON [Concomitant]
     Active Substance: PANCRELIPASE AMYLASE\PANCRELIPASE LIPASE\PANCRELIPASE PROTEASE
  13. CEFTRIAXONE. [Concomitant]
     Active Substance: CEFTRIAXONE
  14. NASONEX [Concomitant]
     Active Substance: MOMETASONE FUROATE
  15. CHILDRENS TYLENOL [Concomitant]
     Active Substance: ACETAMINOPHEN
  16. HIZENTRA [Suspect]
     Active Substance: HUMAN IMMUNOGLOBULIN G
     Indication: IMMUNODEFICIENCY COMMON VARIABLE
     Route: 058
  17. XOPENEX [Concomitant]
     Active Substance: LEVALBUTEROL HYDROCHLORIDE

REACTIONS (1)
  - Respiratory tract infection [Recovering/Resolving]

NARRATIVE: CASE EVENT DATE: 201512
